FAERS Safety Report 4930983-2 (Version None)
Quarter: 2006Q1

REPORT INFORMATION
  Report Type: 
  Country: None (occurrence: None)
  Receive Date: 20060227
  Receipt Date: 20060217
  Transmission Date: 20060701
  Serious: Yes (Hospitalization, Other)
  Sender: FDA-Public Use
  Company Number: 2005168142

PATIENT
  Age: 60 Year
  Sex: Female

DRUGS (3)
  1. NEURONTIN [Suspect]
     Indication: CEREBRAL HAEMORRHAGE
     Dosage: 1.8 GRAM (1 D), ORAL
     Route: 048
     Dates: start: 20051024, end: 20051110
  2. AMLODIPINE [Concomitant]
  3. NIMODIPINE (NIMODIPINE) [Concomitant]

REACTIONS (5)
  - COMA [None]
  - HYDROCEPHALUS [None]
  - METABOLIC ENCEPHALOPATHY [None]
  - NEUROLOGICAL SYMPTOM [None]
  - TOXIC INDUCED ENCEPHALOPATHY [None]
